FAERS Safety Report 13401416 (Version 1)
Quarter: 2017Q2

REPORT INFORMATION
  Report Type: Spontaneous
  Country: DE (occurrence: DE)
  Receive Date: 20170404
  Receipt Date: 20170404
  Transmission Date: 20170830
  Serious: Yes (Hospitalization)
  Sender: FDA-Public Use
  Company Number: DE-TEVA-756455GER

PATIENT
  Age: 73 Year
  Sex: Female

DRUGS (4)
  1. VALSARTAN-COMP PUREN 160/12.5 MG [Suspect]
     Active Substance: HYDROCHLOROTHIAZIDE\VALSARTAN
     Indication: HYPERTENSION
     Dosage: 1 DOSAGE FORMS DAILY; 1 DF CONTAINS: VALSARTAN 160 MG AND HYDROCHLOROTHIAZIDE 25 MG
     Route: 048
  2. DEKRISTOL [Concomitant]
     Active Substance: CHOLECALCIFEROL
     Indication: OSTEOPOROSIS
  3. ASS 1 A PHARMA 100 MG [Interacting]
     Active Substance: ASPIRIN
     Indication: ANTIPLATELET THERAPY
     Dosage: 1 DOSAGE FORMS DAILY;
     Route: 048
  4. METOPROLOL. [Concomitant]
     Active Substance: METOPROLOL
     Indication: HYPERTENSION
     Dosage: 1 DOSAGE FORMS DAILY; MORE THAN 2 YEARS AGO
     Route: 048

REACTIONS (2)
  - Epistaxis [Recovered/Resolved]
  - Drug interaction [Unknown]

NARRATIVE: CASE EVENT DATE: 20170320
